FAERS Safety Report 7303798-8 (Version None)
Quarter: 2011Q1

REPORT INFORMATION
  Report Type: 
  Country: None (occurrence: None)
  Receive Date: 20110221
  Receipt Date: 20110204
  Transmission Date: 20110831
  Serious: Yes (Death, Other)
  Sender: FDA-Public Use
  Company Number: US-ROCHE-759193

PATIENT
  Sex: Male

DRUGS (3)
  1. BEVACIZUMAB [Suspect]
     Indication: GLIOBLASTOMA
     Dosage: LASTE DOSE PRIOR TO SAE: 02 FEBRUARY 2011.
     Route: 065
     Dates: start: 20100607
  2. DEXAMETHASONE [Concomitant]
  3. TEMOZOLOMIDE [Suspect]
     Indication: GLIOBLASTOMA
     Dosage: LAST DOSE PRIOR TO SAE: 02 FEBRUARY 2011.
     Route: 065
     Dates: start: 20100607

REACTIONS (2)
  - DEATH [None]
  - CHRONIC OBSTRUCTIVE PULMONARY DISEASE [None]
